FAERS Safety Report 4283500-7 (Version None)
Quarter: 2004Q1

REPORT INFORMATION
  Report Type: 
  Country: None (occurrence: None)
  Receive Date: 20040202
  Receipt Date: 20030210
  Transmission Date: 20041129
  Serious: No
  Sender: FDA-Public Use
  Company Number: US-BRISTOL-MYERS SQUIBB COMPANY-12183158

PATIENT
  Age: 63 Year
  Sex: Female
  Weight: 61 kg

DRUGS (5)
  1. ULTRAVATE [Suspect]
     Indication: ECZEMA
     Dosage: DOSE VALUE:  ^SMALL AMOUNT^
     Route: 061
     Dates: start: 20020501
  2. ELIDEL [Suspect]
  3. ZYRTEC [Concomitant]
  4. SINGULAIR [Concomitant]
  5. ALLEGRA [Concomitant]

REACTIONS (1)
  - LYMPHADENOPATHY [None]
